FAERS Safety Report 7406055-4 (Version None)
Quarter: 2011Q2

REPORT INFORMATION
  Report Type: 
  Country: None (occurrence: None)
  Receive Date: 20110411
  Receipt Date: 20110331
  Transmission Date: 20111010
  Serious: Yes (Other)
  Sender: FDA-Public Use
  Company Number: B0708313A

PATIENT
  Age: 21 Year
  Sex: Male

DRUGS (4)
  1. GEMTUZUMAB OZOGAMICIN [Suspect]
     Route: 065
  2. FLUDARABINE PHOSPHATE [Suspect]
     Route: 065
  3. ALKERAN [Suspect]
     Route: 042
  4. TOTAL BODY IRRADIATION [Suspect]
     Route: 065

REACTIONS (6)
  - NON-CARDIOGENIC PULMONARY OEDEMA [None]
  - HYPOXIA [None]
  - DYSPNOEA [None]
  - PULMONARY VENO-OCCLUSIVE DISEASE [None]
  - SYNCOPE [None]
  - PULMONARY HYPERTENSION [None]
